FAERS Safety Report 22861349 (Version 7)
Quarter: 2024Q1

REPORT INFORMATION
  Report Type: Spontaneous
  Country: US (occurrence: US)
  Receive Date: 20230824
  Receipt Date: 20240109
  Transmission Date: 20240410
  Serious: Yes (Hospitalization)
  Sender: FDA-Public Use
  Company Number: US-PFIZER INC-202200646645

PATIENT
  Age: 72 Year
  Sex: Female
  Weight: 58.05 kg

DRUGS (3)
  1. BRAFTOVI [Suspect]
     Active Substance: ENCORAFENIB
     Indication: Colon cancer
     Dosage: 75 MG
     Dates: start: 20230329
  2. BRAFTOVI [Suspect]
     Active Substance: ENCORAFENIB
     Dosage: 300 MG
  3. BRAFTOVI [Suspect]
     Active Substance: ENCORAFENIB
     Dosage: 175 MG PER DAY
     Dates: end: 2023

REACTIONS (8)
  - Blood pressure abnormal [Not Recovered/Not Resolved]
  - Cardiac disorder [Unknown]
  - Malaise [Unknown]
  - Dysphonia [Unknown]
  - Cough [Unknown]
  - Neoplasm recurrence [Unknown]
  - Neoplasm progression [Unknown]
  - Off label use [Unknown]
